FAERS Safety Report 8800116 (Version 4)
Quarter: 2016Q1

REPORT INFORMATION
  Report Type: Spontaneous
  Country: GB (occurrence: GB)
  Receive Date: 20120921
  Receipt Date: 20160203
  Transmission Date: 20160526
  Serious: Yes (Death, Other)
  Sender: FDA-Public Use
  Company Number: GB-BRISTOL-MYERS SQUIBB COMPANY-16394934

PATIENT
  Age: 36 Year
  Sex: Male

DRUGS (8)
  1. ZOCOR [Suspect]
     Active Substance: SIMVASTATIN
     Indication: PRODUCT USED FOR UNKNOWN INDICATION
     Dosage: UNK
     Route: 048
     Dates: end: 20120108
  2. CLONAZEPAM. [Concomitant]
     Active Substance: CLONAZEPAM
     Indication: PRODUCT USED FOR UNKNOWN INDICATION
     Dosage: UNK
     Route: 065
     Dates: end: 20120108
  3. OMEPRAZOL E [Concomitant]
     Active Substance: OMEPRAZOLE
     Indication: PRODUCT USED FOR UNKNOWN INDICATION
     Dosage: UNK
     Route: 065
     Dates: end: 20120124
  4. VALPROATE SODIUM. [Concomitant]
     Active Substance: VALPROATE SODIUM
     Indication: PRODUCT USED FOR UNKNOWN INDICATION
     Dosage: UNK
     Route: 065
     Dates: end: 20120108
  5. FOLIC ACID. [Concomitant]
     Active Substance: FOLIC ACID
     Indication: PRODUCT USED FOR UNKNOWN INDICATION
     Route: 065
  6. ARIPIPRAZOLE. [Suspect]
     Active Substance: ARIPIPRAZOLE
     Indication: SCHIZOPHRENIA
     Dosage: 5 MG, QD
     Route: 048
     Dates: end: 20120108
  7. WARFARIN SODIUM. [Concomitant]
     Active Substance: WARFARIN SODIUM
     Indication: PRODUCT USED FOR UNKNOWN INDICATION
     Dosage: UNK
     Route: 065
     Dates: end: 20120108
  8. ZAPONEX [Suspect]
     Active Substance: CLOZAPINE
     Indication: SCHIZOPHRENIA
     Dosage: 450 MG, UNK
     Route: 048
     Dates: start: 20070510, end: 20120108

REACTIONS (24)
  - Cerebral arteriosclerosis [Not Recovered/Not Resolved]
  - Diabetes mellitus [Unknown]
  - Pulmonary oedema [Not Recovered/Not Resolved]
  - Sepsis [Fatal]
  - Blood creatine phosphokinase increased [Unknown]
  - Anaemia [Unknown]
  - Haemorrhage [Not Recovered/Not Resolved]
  - Hyperosmolar state [Unknown]
  - Splenomegaly [Not Recovered/Not Resolved]
  - Large intestine perforation [Fatal]
  - Arteriosclerosis [Not Recovered/Not Resolved]
  - Renal disorder [Not Recovered/Not Resolved]
  - Hepatomegaly [Not Recovered/Not Resolved]
  - Off label use [Unknown]
  - Neuroleptic malignant syndrome [Fatal]
  - Hepatic function abnormal [Unknown]
  - Otitis externa [Not Recovered/Not Resolved]
  - Obesity [Unknown]
  - Peritonitis [Fatal]
  - Multiple organ dysfunction syndrome [Fatal]
  - Circulatory collapse [Unknown]
  - Renal impairment [Unknown]
  - Generalised oedema [Not Recovered/Not Resolved]
  - Liver injury [Not Recovered/Not Resolved]

NARRATIVE: CASE EVENT DATE: 20120109
